FAERS Safety Report 8326886-6 (Version None)
Quarter: 2012Q2

REPORT INFORMATION
  Report Type: 
  Country: None (occurrence: None)
  Receive Date: 20120501
  Receipt Date: 20120416
  Transmission Date: 20120825
  Serious: Yes (Death)
  Sender: FDA-Public Use
  Company Number: NL-ARROW GEN-2012-06751

PATIENT
  Age: 79 Year
  Sex: Male

DRUGS (2)
  1. CIPROFLOXACIN HCL [Suspect]
     Indication: BRONCHOPNEUMONIA
     Dosage: 500 MG, BID
     Route: 065
  2. ERLOTINIB HYDROCHLORIDE [Suspect]
     Indication: LUNG NEOPLASM MALIGNANT
     Dosage: 150 MG, DAILY
     Route: 065

REACTIONS (3)
  - RESPIRATORY FAILURE [None]
  - DRUG INTERACTION [None]
  - INTERSTITIAL LUNG DISEASE [None]
